FAERS Safety Report 6053311-0 (Version None)
Quarter: 2009Q1

REPORT INFORMATION
  Report Type: 
  Country: None (occurrence: None)
  Receive Date: 20090127
  Receipt Date: 20090119
  Transmission Date: 20090719
  Serious: Yes (Hospitalization)
  Sender: FDA-Public Use
  Company Number: A0765130A

PATIENT
  Age: 34 Year
  Sex: Female
  Weight: 58 kg

DRUGS (7)
  1. RETROVIR [Suspect]
     Indication: HIV INFECTION
     Dosage: 300MG PER DAY
     Route: 048
     Dates: start: 20081006, end: 20081210
  2. TRUVADA [Suspect]
     Indication: HIV INFECTION
     Dosage: 500MG PER DAY
     Dates: start: 20070524, end: 20081006
  3. KALETRA [Suspect]
     Indication: HIV INFECTION
     Dosage: 500MG PER DAY
     Dates: start: 20071101
  4. EMTRIVA [Suspect]
     Indication: HIV INFECTION
     Dosage: 200MG PER DAY
     Dates: start: 20081006, end: 20081210
  5. AMODIAQUINE [Concomitant]
     Indication: MALARIA
  6. ACETAMINOPHEN [Concomitant]
     Indication: MALARIA
  7. DEPO-PROVERA [Concomitant]

REACTIONS (5)
  - BACK PAIN [None]
  - CERVIX HAEMORRHAGE UTERINE [None]
  - DRUG EXPOSURE DURING PREGNANCY [None]
  - PREMATURE RUPTURE OF MEMBRANES [None]
  - VAGINAL DISCHARGE [None]
